FAERS Safety Report 23231170 (Version 1)
Quarter: 2023Q4

REPORT INFORMATION
  Report Type: Spontaneous
  Country: BR (occurrence: BR)
  Receive Date: 20231127
  Receipt Date: 20231127
  Transmission Date: 20240110
  Serious: Yes (Other)
  Sender: FDA-Public Use
  Company Number: BR-Ipsen Biopharmaceuticals, Inc.-2022-34606

PATIENT
  Age: 46 Year
  Sex: Male
  Weight: 96 kg

DRUGS (1)
  1. LANREOTIDE ACETATE [Suspect]
     Active Substance: LANREOTIDE ACETATE
     Indication: Acromegaly
     Dosage: 1 SYRINGE EVERY 30 DAYS
     Route: 058
     Dates: start: 20221109, end: 202310

REACTIONS (5)
  - Surgery [Unknown]
  - Unevaluable event [Unknown]
  - Unevaluable event [Unknown]
  - Product dose omission issue [Unknown]
  - Inappropriate schedule of product administration [Unknown]

NARRATIVE: CASE EVENT DATE: 20231001
